FAERS Safety Report 14411838 (Version 3)
Quarter: 2018Q1

REPORT INFORMATION
  Report Type: Spontaneous
  Country: BE (occurrence: BE)
  Receive Date: 20180119
  Receipt Date: 20180312
  Transmission Date: 20180509
  Serious: Yes (Disabling)
  Sender: FDA-Public Use
  Company Number: BE-BAYER-2018-012353

PATIENT
  Sex: Female

DRUGS (2)
  1. MIRENA [Suspect]
     Active Substance: LEVONORGESTREL
  2. MIRENA [Suspect]
     Active Substance: LEVONORGESTREL
     Dosage: 20 MCG/24HR, CONT
     Route: 015
     Dates: start: 20150901

REACTIONS (16)
  - Loss of libido [Unknown]
  - Vomiting [Unknown]
  - Back pain [Unknown]
  - Weight increased [Unknown]
  - Arthralgia [Unknown]
  - Hair growth abnormal [Unknown]
  - Fatigue [Unknown]
  - Seborrhoeic dermatitis [Unknown]
  - Weight decreased [Unknown]
  - Abdominal pain lower [Unknown]
  - Fluid retention [Unknown]
  - Breast pain [Unknown]
  - Depression [Unknown]
  - Irritability [Unknown]
  - Headache [Unknown]
  - Oedema peripheral [Unknown]

NARRATIVE: CASE EVENT DATE: 2015
